FAERS Safety Report 5590603-3 (Version None)
Quarter: 2008Q1

REPORT INFORMATION
  Report Type: 
  Country: None (occurrence: None)
  Receive Date: 20080114
  Receipt Date: 20080103
  Transmission Date: 20080703
  Serious: Yes (Death)
  Sender: FDA-Public Use
  Company Number: US-GENENTECH-254008

PATIENT
  Age: 34 Year
  Sex: Female

DRUGS (1)
  1. RITUXAN [Suspect]
     Indication: PRIMARY MEDIASTINAL LARGE B-CELL LYMPHOMA
     Dosage: 375 MG/M2, Q4W
     Dates: start: 20000101

REACTIONS (1)
  - JC VIRUS INFECTION [None]
